FAERS Safety Report 14860922 (Version 1)
Quarter: 2018Q2

REPORT INFORMATION
  Report Type: Report from Study
  Country: US (occurrence: US)
  Receive Date: 20180508
  Receipt Date: 20180508
  Transmission Date: 20180711
  Serious: Yes (Death)
  Sender: FDA-Public Use
  Company Number: US-CELGENEUS-USA-20180501789

PATIENT
  Age: 83 Year
  Sex: Female

DRUGS (2)
  1. ROMIDEPSIN. [Suspect]
     Active Substance: ROMIDEPSIN
     Indication: DIFFUSE LARGE B-CELL LYMPHOMA
     Route: 065
     Dates: start: 20161122, end: 20161129
  2. CARFILZOMIB [Suspect]
     Active Substance: CARFILZOMIB
     Indication: DIFFUSE LARGE B-CELL LYMPHOMA
     Route: 065
     Dates: start: 20161122, end: 20161129

REACTIONS (1)
  - Death [Fatal]

NARRATIVE: CASE EVENT DATE: 20170126
